FAERS Safety Report 23757199 (Version 1)
Quarter: 2024Q2

REPORT INFORMATION
  Report Type: Report from Study
  Country: JP (occurrence: JP)
  Receive Date: 20240418
  Receipt Date: 20240418
  Transmission Date: 20240716
  Serious: Yes (Other)
  Sender: FDA-Public Use
  Company Number: JP-OTSUKA-2024_010587

PATIENT

DRUGS (3)
  1. UNSPECIFIED INGREDIENT [Suspect]
     Active Substance: UNSPECIFIED INGREDIENT
     Indication: Product used for unknown indication
     Dosage: UNK
     Route: 065
  2. SAMSCA [Suspect]
     Active Substance: TOLVAPTAN
     Indication: Cardiac failure
     Dosage: UNK
     Route: 065
  3. SAMSCA [Suspect]
     Active Substance: TOLVAPTAN
     Indication: Fluid retention
     Dosage: UNK
     Route: 065

REACTIONS (1)
  - Renal impairment [Unknown]
